FAERS Safety Report 21983061 (Version 1)
Quarter: 2023Q1

REPORT INFORMATION
  Report Type: Spontaneous
  Country: CN (occurrence: CN)
  Receive Date: 20230213
  Receipt Date: 20230213
  Transmission Date: 20230418
  Serious: Yes (Hospitalization, Other)
  Sender: FDA-Public Use
  Company Number: CN-STERISCIENCE B.V.-2023-ST-000462

PATIENT
  Age: 24 Year
  Sex: Male

DRUGS (12)
  1. GANCICLOVIR SODIUM [Suspect]
     Active Substance: GANCICLOVIR SODIUM
     Indication: Viral infection
     Dosage: UNKNOWN
     Route: 065
     Dates: start: 2019
  2. METHYLPREDNISOLONE [Concomitant]
     Active Substance: METHYLPREDNISOLONE
     Indication: Acute respiratory distress syndrome
     Dosage: UNKNOWN
     Route: 065
  3. METHYLPREDNISOLONE [Concomitant]
     Active Substance: METHYLPREDNISOLONE
     Indication: Immunosuppression
     Dosage: UNK
     Dates: start: 2019
  4. TACROLIMUS [Concomitant]
     Active Substance: TACROLIMUS
     Indication: Immunosuppression
     Dosage: UNKNOWN
     Route: 065
  5. MEROPENEM [Concomitant]
     Active Substance: MEROPENEM
     Indication: Bacterial infection
     Dosage: UNKNOWN
     Route: 065
     Dates: start: 2019
  6. VORICONAZOLE [Interacting]
     Active Substance: VORICONAZOLE
     Indication: Antifungal treatment
     Dosage: LOADING DOSE OF 300MG EVERY 12H FOR THE FIRST 24H
     Route: 042
     Dates: start: 2019
  7. VORICONAZOLE [Interacting]
     Active Substance: VORICONAZOLE
     Dosage: 200 MILLIGRAM, BID
     Route: 042
     Dates: start: 2019
  8. VORICONAZOLE [Interacting]
     Active Substance: VORICONAZOLE
     Dosage: REINITIATED AT 100 MILLIGRAM, BID
     Dates: start: 2019
  9. PANTOPRAZOLE [Interacting]
     Active Substance: PANTOPRAZOLE
     Indication: Product used for unknown indication
     Dosage: 40 MILLIGRAM, ONCE DAILY
     Route: 042
     Dates: start: 2019
  10. TEICOPLANIN [Concomitant]
     Active Substance: TEICOPLANIN
     Indication: Bacterial infection
     Dosage: UNKNOWN
     Route: 065
     Dates: start: 2019
  11. COTRIMOXAZOLE [Concomitant]
     Active Substance: SULFAMETHOXAZOLE\TRIMETHOPRIM
     Indication: Pneumocystis jirovecii infection
     Dosage: UNKNOWN
     Route: 065
     Dates: start: 2019
  12. CASPOFUNGIN [Concomitant]
     Active Substance: CASPOFUNGIN
     Indication: Antifungal treatment
     Dosage: UNKNOWN
     Route: 065
     Dates: start: 2019

REACTIONS (1)
  - Myelosuppression [Unknown]

NARRATIVE: CASE EVENT DATE: 20190101
